FAERS Safety Report 13625556 (Version 6)
Quarter: 2017Q4

REPORT INFORMATION
  Report Type: Report from Study
  Country: JP (occurrence: JP)
  Receive Date: 20170608
  Receipt Date: 20171215
  Transmission Date: 20180320
  Serious: Yes (Death, Life-Threatening, Hospitalization)
  Sender: FDA-Public Use
  Company Number: JP-B.I. PHARMACEUTICALS,INC./RIDGEFIELD-2017-NB-003049

PATIENT
  Age: 83 Year
  Sex: Male
  Weight: 62.9 kg

DRUGS (1)
  1. PRAZAXA [Suspect]
     Active Substance: DABIGATRAN ETEXILATE MESYLATE
     Indication: ATRIAL FIBRILLATION
     Route: 048
     Dates: start: 2014, end: 20170525

REACTIONS (3)
  - Cerebellar haemorrhage [Recovered/Resolved]
  - Brain herniation [Fatal]
  - Cerebellar haemorrhage [Unknown]

NARRATIVE: CASE EVENT DATE: 20170526
